FAERS Safety Report 11102359 (Version 1)
Quarter: 2015Q2

REPORT INFORMATION
  Report Type: Spontaneous
  Country: US (occurrence: None)
  Receive Date: 20150507
  Receipt Date: 20150507
  Transmission Date: 20150821
  Serious: Yes (Other)
  Sender: FDA-Public Use
  Company Number: 001915325A

PATIENT
  Age: 65 Year
  Sex: Female

DRUGS (3)
  1. PROACTIV REPAIRING TREATMENT [Suspect]
     Active Substance: BENZOYL PEROXIDE
     Indication: ACNE
     Dosage: DERMAL QD
     Dates: start: 20140319, end: 20140321
  2. PROACTIV RENEWING CLEANSER [Suspect]
     Active Substance: BENZOYL PEROXIDE
     Indication: ACNE
     Dosage: DERMAL QD
     Dates: start: 20140319, end: 20140321
  3. PROACTIV SKIN LIGHTENING [Suspect]
     Active Substance: HYDROQUINONE
     Indication: ACNE
     Dosage: DERMAL QD
     Dates: start: 20140319, end: 20140321

REACTIONS (5)
  - Visual acuity reduced [None]
  - Eye irritation [None]
  - Retinal oedema [None]
  - Eye infection [None]
  - Retinal haemorrhage [None]

NARRATIVE: CASE EVENT DATE: 20140321
